FAERS Safety Report 15506742 (Version 1)
Quarter: 2018Q4

REPORT INFORMATION
  Report Type: Spontaneous
  Country: MX (occurrence: MX)
  Receive Date: 20181016
  Receipt Date: 20181016
  Transmission Date: 20190205
  Serious: Yes (Other)
  Sender: FDA-Public Use
  Company Number: PHHY2018MX126867

PATIENT
  Sex: Male
  Weight: 3.5 kg

DRUGS (1)
  1. METFORMIN [Suspect]
     Active Substance: METFORMIN HYDROCHLORIDE
     Indication: FOETAL EXPOSURE DURING PREGNANCY
     Route: 064

REACTIONS (30)
  - Neck deformity [Unknown]
  - Metabolic disorder [Unknown]
  - Microcephaly [Unknown]
  - Shock [Unknown]
  - Congenital central nervous system anomaly [Unknown]
  - Septum pellucidum agenesis [Unknown]
  - Delayed fontanelle closure [Unknown]
  - Hypotelorism of orbit [Unknown]
  - Nose deformity [Unknown]
  - Systemic inflammatory response syndrome [Unknown]
  - Univentricular heart [Unknown]
  - Eyelash injury [Unknown]
  - High arched palate [Unknown]
  - Hypocalcaemia [Unknown]
  - Hyperglycaemia [Unknown]
  - Face injury [Unknown]
  - Holoprosencephaly [Unknown]
  - Premature baby [Unknown]
  - Apnoea [Unknown]
  - Clonic convulsion [Unknown]
  - Anterior chamber disorder [Unknown]
  - Hypertrichosis [Unknown]
  - Microphthalmos [Unknown]
  - Dysmorphism [Unknown]
  - Haemorrhage intracranial [Unknown]
  - Skin lesion [Unknown]
  - Foetal exposure during pregnancy [Unknown]
  - Hyperbilirubinaemia [Unknown]
  - Optic nerve hypoplasia [Unknown]
  - Hypoglycaemia [Unknown]
